FAERS Safety Report 4524124-3 (Version None)
Quarter: 2004Q4

REPORT INFORMATION
  Report Type: 
  Country: None (occurrence: None)
  Receive Date: 20041209
  Receipt Date: 20041126
  Transmission Date: 20050328
  Serious: Yes (Disabling)
  Sender: FDA-Public Use
  Company Number: 2004094339

PATIENT
  Age: 87 Year
  Sex: Male
  Weight: 73 kg

DRUGS (2)
  1. DIFLUCAN [Suspect]
     Indication: TINEA INFECTION
     Dates: start: 19990101, end: 20041028
  2. CRATAEGUS EXTRACT (CRATAEGUS EXTRACT) [Concomitant]

REACTIONS (4)
  - DIPLOPIA [None]
  - INFARCTION [None]
  - MONONEURITIS [None]
  - VITH NERVE PARALYSIS [None]
